FAERS Safety Report 9117419 (Version 1)
Quarter: 2013Q1

REPORT INFORMATION
  Report Type: Spontaneous
  Country: ES (occurrence: ES)
  Receive Date: 20130225
  Receipt Date: 20130225
  Transmission Date: 20140127
  Serious: Yes (Death, Hospitalization, Other)
  Sender: FDA-Public Use
  Company Number: ES-ACCORD-016551

PATIENT
  Age: 44 Year
  Sex: Male

DRUGS (3)
  1. ETOPOSIDE [Suspect]
     Indication: NON-HODGKIN^S LYMPHOMA
  2. CARBOPLATIN [Suspect]
     Indication: NON-HODGKIN^S LYMPHOMA
  3. IFOSFAMIDE [Suspect]
     Indication: NON-HODGKIN^S LYMPHOMA

REACTIONS (5)
  - Capnocytophaga infection [Fatal]
  - Pancytopenia [Unknown]
  - Multi-organ failure [Fatal]
  - Off label use [Unknown]
  - Hepatorenal failure [Unknown]
